FAERS Safety Report 11189487 (Version 5)
Quarter: 2018Q3

REPORT INFORMATION
  Report Type: Spontaneous
  Country: US (occurrence: US)
  Receive Date: 20150615
  Receipt Date: 20180921
  Transmission Date: 20181010
  Serious: Yes (Hospitalization, Other)
  Sender: FDA-Public Use
  Company Number: US-DSJP-DSU-2014-125824

PATIENT

DRUGS (2)
  1. BENICAR [Suspect]
     Active Substance: OLMESARTAN MEDOXOMIL
     Dosage: 20 MG, QD
     Route: 048
     Dates: start: 20090101
  2. BENICAR [Suspect]
     Active Substance: OLMESARTAN MEDOXOMIL
     Indication: HYPERTENSION
     Dosage: 10 MG, QD
     Route: 048
     Dates: start: 20090101, end: 201311

REACTIONS (15)
  - Pyrexia [Unknown]
  - Decreased appetite [Unknown]
  - Diverticulitis [Unknown]
  - Hyperphosphataemia [Unknown]
  - Haematochezia [Unknown]
  - Calculus urinary [Unknown]
  - Intestinal ischaemia [Unknown]
  - Intestinal perforation [Unknown]
  - Acute kidney injury [Unknown]
  - Hypermagnesaemia [Unknown]
  - Incorrect dose administered [Unknown]
  - Gastroenteritis [Unknown]
  - Hydronephrosis [Unknown]
  - Hypoproteinaemia [Unknown]
  - Sprue-like enteropathy [Recovering/Resolving]

NARRATIVE: CASE EVENT DATE: 20100101
